FAERS Safety Report 6507186-3 (Version None)
Quarter: 2009Q4

REPORT INFORMATION
  Report Type: 
  Country: None (occurrence: None)
  Receive Date: 20091216
  Receipt Date: 20091202
  Transmission Date: 20100525
  Serious: Yes (Death)
  Sender: FDA-Public Use
  Company Number: 1-20834707

PATIENT
  Sex: Female

DRUGS (1)
  1. SANTYL [Suspect]
     Indication: WOUND SECRETION
     Dosage: TOPICAL
     Route: 061

REACTIONS (3)
  - DIET REFUSAL [None]
  - PURULENT DISCHARGE [None]
  - SEPSIS [None]
